FAERS Safety Report 9853051 (Version 2)
Quarter: 2014Q2

REPORT INFORMATION
  Report Type: Spontaneous
  Country: GB (occurrence: GB)
  Receive Date: 20140129
  Receipt Date: 20140416
  Transmission Date: 20141212
  Serious: Yes (Disabling, Other)
  Sender: FDA-Public Use
  Company Number: GB-ALLERGAN-1401142US

PATIENT
  Age: 53 Year
  Sex: Female
  Weight: 89 kg

DRUGS (6)
  1. BOTOX [Suspect]
     Indication: PRODUCT USED FOR UNKNOWN INDICATION
     Dosage: 140 UNITS, SINGLE
     Route: 030
     Dates: start: 20130613, end: 20130613
  2. BOTOX [Suspect]
     Dosage: 140 UNITS, SINGLE
     Route: 030
     Dates: start: 201210, end: 201210
  3. CODEINE [Concomitant]
     Indication: PRODUCT USED FOR UNKNOWN INDICATION
  4. DOMPERIDONE [Concomitant]
     Indication: PRODUCT USED FOR UNKNOWN INDICATION
  5. ESCITALOPRAM [Concomitant]
     Indication: PRODUCT USED FOR UNKNOWN INDICATION
  6. ZOMIG [Concomitant]
     Indication: PRODUCT USED FOR UNKNOWN INDICATION

REACTIONS (5)
  - Exaggerated startle response [Not Recovered/Not Resolved]
  - Fatigue [Not Recovered/Not Resolved]
  - Musculoskeletal stiffness [Not Recovered/Not Resolved]
  - Muscle twitching [Not Recovered/Not Resolved]
  - Hypoaesthesia [Not Recovered/Not Resolved]
